FAERS Safety Report 7600147-2 (Version None)
Quarter: 2011Q3

REPORT INFORMATION
  Report Type: 
  Country: None (occurrence: None)
  Receive Date: 20110711
  Receipt Date: 20110704
  Transmission Date: 20111222
  Serious: Yes (Other)
  Sender: FDA-Public Use
  Company Number: FR-JNJFOC-20110605594

PATIENT
  Sex: Female
  Weight: 69 kg

DRUGS (14)
  1. NIZORAL [Suspect]
     Route: 048
     Dates: start: 20080601
  2. VENTOLIN HFA [Concomitant]
     Indication: ASTHMA
     Route: 048
  3. SINGULAIR [Concomitant]
     Indication: PRODUCT USED FOR UNKNOWN INDICATION
     Route: 048
  4. FLUVASTATIN [Concomitant]
     Indication: BLOOD CHOLESTEROL
     Route: 048
  5. ESCITALOPRAM OXALATE [Concomitant]
     Indication: DEPRESSION
     Route: 048
  6. NIZORAL [Suspect]
     Dosage: 9 BOXES PER MONTH
     Route: 048
     Dates: start: 20110601
  7. ANTIDEPRESSANT [Concomitant]
     Indication: PRODUCT USED FOR UNKNOWN INDICATION
     Route: 065
  8. VENTOLIN HFA [Concomitant]
     Indication: BRONCHITIS
     Route: 048
  9. NIZORAL [Suspect]
     Indication: CUSHING'S SYNDROME
     Dosage: 12 BOXES PER MONTH
     Route: 048
  10. SALMETEROL [Concomitant]
     Indication: BRONCHITIS
     Route: 048
  11. NIZORAL [Suspect]
     Route: 048
     Dates: start: 20080328, end: 20080601
  12. OROCAL [Concomitant]
     Indication: OSTEOPOROSIS
     Route: 048
  13. CALCIUM CARBONATE [Concomitant]
     Indication: PRODUCT USED FOR UNKNOWN INDICATION
     Route: 065
  14. SALMETEROL [Concomitant]
     Indication: ASTHMA
     Route: 048

REACTIONS (3)
  - TREMOR [None]
  - OFF LABEL USE [None]
  - OVERDOSE [None]
